FAERS Safety Report 9929219 (Version 2)
Quarter: 2014Q3

REPORT INFORMATION
  Report Type: Spontaneous
  Country: CA (occurrence: None)
  Receive Date: 20140224
  Receipt Date: 20140806
  Transmission Date: 20150326
  Serious: Yes (Other)
  Sender: FDA-Public Use
  Company Number: CA14-112

PATIENT
  Age: 36 Year
  Sex: Female

DRUGS (8)
  1. NICOTINE. [Suspect]
     Active Substance: NICOTINE
     Indication: PRODUCT USED FOR UNKNOWN INDICATION
     Dates: end: 2013
  2. SUBOXONE [Suspect]
     Active Substance: BUPRENORPHINE HYDROCHLORIDE\NALOXONE HYDROCHLORIDE
     Indication: DRUG DEPENDENCE
     Route: 060
     Dates: start: 2012, end: 2012
  3. OXYCONTIN [Suspect]
     Active Substance: OXYCODONE HYDROCHLORIDE
     Dates: end: 2012
  4. SUBUTEX [Suspect]
     Active Substance: BUPRENORPHINE HYDROCHLORIDE
     Indication: DRUG DEPENDENCE
     Route: 060
     Dates: start: 2012, end: 2012
  5. PAXIL CR [Suspect]
     Active Substance: PAROXETINE HYDROCHLORIDE
     Indication: ANXIETY
     Dates: start: 2006
  6. PRENATAL VITAMINS [Suspect]
     Active Substance: VITAMINS
     Indication: PREGNANCY
     Dates: start: 2012, end: 2012
  7. DICLECTIN [Suspect]
     Active Substance: DOXYLAMINE\PYRIDOXINE
  8. FOLIC ACID. [Suspect]
     Active Substance: FOLIC ACID
     Dates: start: 2013

REACTIONS (6)
  - Maternal exposure during pregnancy [None]
  - Pre-eclampsia [None]
  - Hypertension [None]
  - Hepatic enzyme increased [None]
  - Non-alcoholic steatohepatitis [None]
  - Premature delivery [None]

NARRATIVE: CASE EVENT DATE: 2012
